FAERS Safety Report 24351570 (Version 4)
Quarter: 2024Q4

REPORT INFORMATION
  Report Type: Spontaneous
  Country: AU (occurrence: AU)
  Receive Date: 20240923
  Receipt Date: 20241121
  Transmission Date: 20250114
  Serious: Yes (Hospitalization, Other)
  Sender: AMGEN
  Company Number: AU-AMGEN-AUSSP2024183991

PATIENT
  Age: 49 Year
  Sex: Female
  Weight: 65.986 kg

DRUGS (2)
  1. XGEVA [Suspect]
     Active Substance: DENOSUMAB
     Indication: Osteoporosis
     Dosage: UNK
     Route: 065
     Dates: end: 202407
  2. XGEVA [Suspect]
     Active Substance: DENOSUMAB
     Dosage: 120 MILLIGRAM, Q4WK
     Route: 058
     Dates: start: 20240703, end: 20240907

REACTIONS (5)
  - Metastases to bone [Recovered/Resolved]
  - Osteonecrosis of jaw [Recovered/Resolved]
  - Metastases to spine [Recovered/Resolved]
  - Metastases to lymph nodes [Recovered/Resolved]
  - Subcutaneous abscess [Recovered/Resolved]

NARRATIVE: CASE EVENT DATE: 20231205
